FAERS Safety Report 16627911 (Version 4)
Quarter: 2019Q3

REPORT INFORMATION
  Report Type: Report from Study
  Country: US (occurrence: US)
  Receive Date: 20190724
  Receipt Date: 20190822
  Transmission Date: 20191004
  Serious: Yes (Hospitalization, Other)
  Sender: FDA-Public Use
  Company Number: US-GILEAD-2019-0419777

PATIENT
  Age: 54 Year
  Sex: Female

DRUGS (3)
  1. UPTRAVI [Concomitant]
     Active Substance: SELEXIPAG
     Dosage: UNK
     Dates: end: 20190813
  2. AMBRISENTAN [Suspect]
     Active Substance: AMBRISENTAN
     Indication: PULMONARY HYPERTENSION
     Dosage: 10 MG, QD
     Route: 065
     Dates: start: 20171026
  3. UPTRAVI [Concomitant]
     Active Substance: SELEXIPAG
     Dosage: 1000 UG, BID
     Dates: start: 20190813

REACTIONS (4)
  - Diarrhoea [Unknown]
  - Diverticulitis [Unknown]
  - Clostridium difficile infection [Not Recovered/Not Resolved]
  - Diverticulitis [Not Recovered/Not Resolved]

NARRATIVE: CASE EVENT DATE: 20190716
